FAERS Safety Report 25644778 (Version 2)
Quarter: 2025Q4

REPORT INFORMATION
  Report Type: Spontaneous
  Country: US (occurrence: US)
  Receive Date: 20250805
  Receipt Date: 20251027
  Transmission Date: 20260117
  Serious: No
  Sender: SANOFI AVENTIS
  Company Number: US-SA-2025SA227333

PATIENT
  Sex: Female

DRUGS (2)
  1. DUPIXENT [Suspect]
     Active Substance: DUPILUMAB
     Indication: Dermatitis atopic
     Dosage: 300 MG, QOW
     Route: 058
     Dates: start: 202111
  2. CHLORINE [Suspect]
     Active Substance: CHLORINE

REACTIONS (3)
  - Dermatitis atopic [Unknown]
  - Chlorine sensitivity [Unknown]
  - Inappropriate schedule of product administration [Unknown]
